FAERS Safety Report 5489200-X (Version None)
Quarter: 2007Q4

REPORT INFORMATION
  Report Type: 
  Country: None (occurrence: None)
  Receive Date: 20071018
  Receipt Date: 20071008
  Transmission Date: 20080405
  Serious: Yes (Other)
  Sender: FDA-Public Use
  Company Number: US-JNJFOC-20071003880

PATIENT
  Sex: Male
  Weight: 91.63 kg

DRUGS (25)
  1. REMICADE [Suspect]
     Route: 042
  2. REMICADE [Suspect]
     Route: 042
  3. REMICADE [Suspect]
     Route: 042
  4. REMICADE [Suspect]
     Route: 042
  5. REMICADE [Suspect]
     Route: 042
  6. REMICADE [Suspect]
     Route: 042
  7. REMICADE [Suspect]
     Route: 042
  8. REMICADE [Suspect]
     Route: 042
  9. REMICADE [Suspect]
     Route: 042
  10. REMICADE [Suspect]
     Route: 042
  11. REMICADE [Suspect]
     Route: 042
  12. REMICADE [Suspect]
     Route: 042
  13. REMICADE [Suspect]
     Dosage: 3 INFUSIONS AT UNKNOWN DOSAGE
     Route: 042
  14. REMICADE [Suspect]
     Route: 042
  15. REMICADE [Suspect]
     Indication: RHEUMATOID ARTHRITIS
     Route: 042
  16. METHOTREXATE [Concomitant]
  17. PREDNISONE [Concomitant]
  18. ASPIRIN [Concomitant]
  19. DOXAZOSIN MESYLATE [Concomitant]
  20. M.V.I. [Concomitant]
  21. CALCIUM [Concomitant]
  22. PRILOSEC [Concomitant]
  23. FOLIC ACID [Concomitant]
  24. PLAQUENIL [Concomitant]
  25. HYDROCHLOROTHIAZIDE [Concomitant]

REACTIONS (1)
  - FOCAL GLOMERULOSCLEROSIS [None]
